FAERS Safety Report 6351427-2 (Version None)
Quarter: 2009Q3

REPORT INFORMATION
  Report Type: 
  Country: None (occurrence: None)
  Receive Date: 20090912
  Receipt Date: 20090622
  Transmission Date: 20100115
  Serious: No
  Sender: FDA-Public Use
  Company Number: US-ABBOTT-07P-163-0417198-00

PATIENT
  Sex: Female
  Weight: 67.192 kg

DRUGS (9)
  1. HUMIRA [Suspect]
     Indication: CROHN'S DISEASE
     Dosage: SYRINGE
     Route: 058
     Dates: start: 20070601
  2. HUMIRA [Suspect]
     Indication: RHEUMATOID ARTHRITIS
     Dosage: PEN
     Route: 058
  3. PREDNISONE [Concomitant]
     Indication: CROHN'S DISEASE
     Dosage: PT STARTS AND STOPS PREDNISONE AT WILL, NOT AS PRESCRIBED
     Route: 048
  4. PREDNISONE [Concomitant]
     Indication: RHEUMATOID ARTHRITIS
  5. MOMETASONE FUROATE [Concomitant]
     Indication: HYPERSENSITIVITY
     Route: 045
  6. MONTELUKAST [Concomitant]
     Indication: HYPERSENSITIVITY
     Route: 048
  7. METFORMIN HCL [Concomitant]
     Indication: DIABETES MELLITUS
     Route: 048
  8. METHOTREXATE [Concomitant]
     Indication: CROHN'S DISEASE
     Route: 048
     Dates: start: 20070913
  9. METHOTREXATE [Concomitant]
     Indication: RHEUMATOID ARTHRITIS

REACTIONS (4)
  - DRUG INEFFECTIVE [None]
  - INCORRECT DOSE ADMINISTERED [None]
  - INFLUENZA LIKE ILLNESS [None]
  - NAUSEA [None]
